FAERS Safety Report 7197049-5 (Version None)
Quarter: 2010Q4

REPORT INFORMATION
  Report Type: 
  Country: None (occurrence: None)
  Receive Date: 20101224
  Receipt Date: 20101220
  Transmission Date: 20110411
  Serious: Yes (Death)
  Sender: FDA-Public Use
  Company Number: PHHY2010NL86852

PATIENT
  Age: 38 Year
  Sex: Male

DRUGS (5)
  1. TOBI [Suspect]
  2. POLYMYXINS [Concomitant]
  3. SALBUTAMOL [Concomitant]
     Dosage: UNK
  4. MUCOCLEAR [Concomitant]
     Dosage: UNK
  5. PULMOZYME [Concomitant]

REACTIONS (1)
  - DEATH [None]
